FAERS Safety Report 15894929 (Version 1)
Quarter: 2019Q1

REPORT INFORMATION
  Report Type: Spontaneous
  Country: GB (occurrence: GB)
  Receive Date: 20190131
  Receipt Date: 20190131
  Transmission Date: 20190417
  Serious: Yes (Other)
  Sender: FDA-Public Use
  Company Number: GB-TAKEDA-2019TUS003075

PATIENT

DRUGS (7)
  1. ICLUSIG [Suspect]
     Active Substance: PONATINIB
     Dosage: 30 MILLIGRAM, QD
     Route: 065
  2. BOSUTINIB [Suspect]
     Active Substance: BOSUTINIB
     Indication: CHRONIC MYELOID LEUKAEMIA
     Dosage: UNK
     Route: 065
  3. HYDROXYCARBAMIDE [Suspect]
     Active Substance: HYDROXYUREA
     Dosage: UNK
     Route: 065
  4. NILOTINIB [Suspect]
     Active Substance: NILOTINIB
     Indication: CHRONIC MYELOID LEUKAEMIA
     Dosage: 400 MILLIGRAM, BID
     Route: 065
     Dates: start: 201501
  5. IMATINIB. [Suspect]
     Active Substance: IMATINIB MESYLATE
     Indication: CHRONIC MYELOID LEUKAEMIA
     Dosage: UNK
     Route: 065
  6. HYDROXYCARBAMIDE [Suspect]
     Active Substance: HYDROXYUREA
     Indication: CHRONIC MYELOID LEUKAEMIA
     Dosage: 1 GRAM, QD
     Route: 065
     Dates: start: 201810
  7. ICLUSIG [Suspect]
     Active Substance: PONATINIB
     Indication: CHRONIC MYELOID LEUKAEMIA
     Dosage: 45 MILLIGRAM, QD
     Route: 065

REACTIONS (4)
  - Cytopenia [Unknown]
  - White blood cell count increased [Unknown]
  - Therapy non-responder [Unknown]
  - Cytogenetic analysis abnormal [Unknown]

NARRATIVE: CASE EVENT DATE: 201411
